FAERS Safety Report 17230059 (Version 1)
Quarter: 2019Q4

REPORT INFORMATION
  Report Type: Spontaneous
  Country: US (occurrence: US)
  Receive Date: 20191210
  Receipt Date: 20191210
  Transmission Date: 20200122
  Serious: Yes (Hospitalization, Other)
  Sender: FDA-Public Use
  Company Number: None

PATIENT
  Age: 80 Year
  Sex: Female
  Weight: 74.84 kg

DRUGS (8)
  1. SCOPOLAMINE [Suspect]
     Active Substance: SCOPOLAMINE
     Indication: MOTION SICKNESS
     Dosage: ?          QUANTITY:1 PATCH FOR 3 DAYS;OTHER ROUTE:ON SKIN - BEHIND THE EAR?
  2. LEVOTHYROXINE. [Concomitant]
     Active Substance: LEVOTHYROXINE
  3. OMEPRAZOLE. [Concomitant]
     Active Substance: OMEPRAZOLE
  4. VITAMIN A + C [Concomitant]
  5. GLUCOSOMINE [Concomitant]
  6. IRON [Concomitant]
     Active Substance: IRON
  7. CALCIUM [Concomitant]
     Active Substance: CALCIUM
  8. RALOXIFENE. [Concomitant]
     Active Substance: RALOXIFENE

REACTIONS (1)
  - Seizure [None]

NARRATIVE: CASE EVENT DATE: 20190926
